FAERS Safety Report 19315461 (Version 1)
Quarter: 2021Q2

REPORT INFORMATION
  Report Type: Spontaneous
  Country: US (occurrence: US)
  Receive Date: 20210527
  Receipt Date: 20210527
  Transmission Date: 20210717
  Serious: Yes (Hospitalization, Other)
  Sender: FDA-Public Use
  Company Number: US-SHILPA MEDICARE LIMITED-SML-US-2021-00656

PATIENT
  Age: 84 Year
  Sex: Female

DRUGS (2)
  1. CYCLOPHOSPHAMIDE. [Suspect]
     Active Substance: CYCLOPHOSPHAMIDE
     Indication: BREAST CANCER
     Route: 065
  2. DOCETAXEL, UNKNOWN [Suspect]
     Active Substance: DOCETAXEL
     Indication: BREAST CANCER
     Route: 065

REACTIONS (1)
  - Stress cardiomyopathy [Unknown]
